FAERS Safety Report 6709442-2 (Version None)
Quarter: 2010Q2

REPORT INFORMATION
  Report Type: 
  Country: None (occurrence: None)
  Receive Date: 20100503
  Receipt Date: 20100503
  Transmission Date: 20101027
  Serious: Yes (Hospitalization, Other)
  Sender: FDA-Public Use
  Company Number: None

PATIENT
  Age: 74 Year
  Sex: Male
  Weight: 79.3795 kg

DRUGS (1)
  1. PHENAZOPYRIDINE HCL TAB [Suspect]
     Indication: PROSTATE CANCER
     Dosage: ONE TABLET TWICE A DAY
     Dates: start: 20090620, end: 20100325

REACTIONS (1)
  - CHEST PAIN [None]
